FAERS Safety Report 9969837 (Version 1)
Quarter: 2014Q1

REPORT INFORMATION
  Report Type: Spontaneous
  Country: US (occurrence: None)
  Receive Date: 20140304
  Receipt Date: 20140304
  Transmission Date: 20141002
  Serious: Yes (Life-Threatening, Hospitalization, Disabling)
  Sender: FDA-Public Use
  Company Number: None

PATIENT
  Age: 50 Year
  Sex: Male

DRUGS (1)
  1. ANDROGEL [Suspect]
     Dosage: 4 PUMPS DAILY; APPLIED TO A SURFACE, USUALLY THE SKIN
     Dates: start: 20100101, end: 20121207

REACTIONS (1)
  - Pulmonary embolism [None]
